FAERS Safety Report 8797061 (Version 3)
Quarter: 2012Q4

REPORT INFORMATION
  Report Type: 
  Country: US (occurrence: US)
  Receive Date: 20120920
  Receipt Date: 20121005
  Transmission Date: 20130627
  Serious: Yes (Death, Hospitalization)
  Sender: FDA-Public Use
  Company Number: US-AMGEN-USASP2012058887

PATIENT
  Age: 70 Year
  Sex: Female
  Weight: 81 kg

DRUGS (8)
  1. PROLIA [Suspect]
     Indication: OSTEOPOROSIS POSTMENOPAUSAL
     Dosage: 60 mg, one time dose
     Route: 058
     Dates: start: 20120822, end: 20120822
  2. INSULIN [Concomitant]
  3. LISINOPRIL [Concomitant]
     Dosage: 10 mg, qd
  4. CRESTOR [Concomitant]
  5. METOPROLOL [Concomitant]
  6. PREDNISONE [Concomitant]
  7. ACYCLOVIR                          /00587301/ [Concomitant]
  8. PERCOCET /00867901/ [Concomitant]

REACTIONS (18)
  - Meningitis pneumococcal [Fatal]
  - Encephalitis [Fatal]
  - Septic shock [Fatal]
  - Organ failure [Fatal]
  - Renal failure acute [Fatal]
  - Respiratory failure [Fatal]
  - Pneumococcal sepsis [Unknown]
  - Somnolence [Unknown]
  - Coma [Unknown]
  - Pulseless electrical activity [Unknown]
  - Metabolic acidosis [Unknown]
  - Transaminases increased [Unknown]
  - Hyponatraemia [Unknown]
  - Anaemia [Unknown]
  - Cardiomyopathy [Unknown]
  - Convulsion [Unknown]
  - Hypocalcaemia [Unknown]
  - Sinusitis [Unknown]
